FAERS Safety Report 6527011-4 (Version None)
Quarter: 2009Q4

REPORT INFORMATION
  Report Type: 
  Country: None (occurrence: None)
  Receive Date: 20091222
  Receipt Date: 20090414
  Transmission Date: 20100525
  Serious: No
  Sender: FDA-Public Use
  Company Number: 244723

PATIENT
  Sex: Female

DRUGS (1)
  1. DEMEROL [Suspect]
     Indication: PROCEDURAL PAIN
     Dosage: ONCE, INTRAVENOUS
     Route: 042
     Dates: start: 20090414, end: 20090414

REACTIONS (1)
  - INJECTION SITE ERYTHEMA [None]
